FAERS Safety Report 14937899 (Version 1)
Quarter: 2018Q2

REPORT INFORMATION
  Report Type: Spontaneous
  Country: US (occurrence: US)
  Receive Date: 20180507
  Receipt Date: 20180507
  Transmission Date: 20180711
  Serious: Yes (Other)
  Sender: FDA-Public Use
  Company Number: None

PATIENT
  Age: 61 Year
  Sex: Female
  Weight: 54.4 kg

DRUGS (5)
  1. MYCOPHENOLATE MOFETIL 500 MG PO TWICE DAILY [Concomitant]
     Dates: start: 20130810, end: 20180507
  2. OMEPRAZOLE 40 MG PO TWICE DAILY [Concomitant]
     Dates: start: 20130810, end: 20160507
  3. GABAPENTIN 100 MCG ORALLY NIGHTLY PRN PAIN [Concomitant]
     Dates: start: 20170608, end: 20180507
  4. ONDANSETRON 4 MG ODT Q6H PRN NAUSEA [Concomitant]
     Dates: start: 20170608, end: 20180507
  5. TACROLIMUS. [Suspect]
     Active Substance: TACROLIMUS
     Indication: LIVER TRANSPLANT
     Route: 048
     Dates: start: 20130810, end: 20180319

REACTIONS (4)
  - Blindness [None]
  - Neuromyelitis optica spectrum disorder [None]
  - Demyelination [None]
  - Leukoencephalopathy [None]

NARRATIVE: CASE EVENT DATE: 20171031
